FAERS Safety Report 4803338-9 (Version None)
Quarter: 2005Q4

REPORT INFORMATION
  Report Type: 
  Country: None (occurrence: None)
  Receive Date: 20051013
  Receipt Date: 20050926
  Transmission Date: 20060501
  Serious: Yes (Hospitalization, Other)
  Sender: FDA-Public Use
  Company Number: US_0502112614

PATIENT
  Age: 47 Year
  Sex: Male
  Weight: 86 kg

DRUGS (15)
  1. ZYPREXA [Suspect]
     Indication: SCHIZOAFFECTIVE DISORDER
     Dosage: 40 MG/1 DAY
     Route: 048
     Dates: start: 20020827, end: 20041118
  2. PROZAC [Concomitant]
  3. ABILIFY [Concomitant]
  4. HUMALOG [Concomitant]
  5. GLUCOPHAGE [Concomitant]
  6. PEGINTERFERON ALFA-2A W/RIBAVIRIN [Concomitant]
  7. NITROGLYCERIN [Concomitant]
  8. OXYCODONE AND ACETAMINOPHEN [Concomitant]
  9. GLUCOTROL [Concomitant]
  10. MIRTAZAPINE [Concomitant]
  11. ATIVAN [Concomitant]
  12. CLONAZEPAM [Concomitant]
  13. PROMETHAZINE [Concomitant]
  14. NEURONTIN [Concomitant]
  15. NORPRAMIN [Concomitant]

REACTIONS (12)
  - BLOOD GLUCOSE INCREASED [None]
  - BLOOD POTASSIUM INCREASED [None]
  - CHRONIC HEPATITIS [None]
  - DIABETES MELLITUS NON-INSULIN-DEPENDENT [None]
  - ELECTROCARDIOGRAM ST SEGMENT ELEVATION [None]
  - ERECTILE DYSFUNCTION [None]
  - HYPOGLYCAEMIA [None]
  - NEUROPATHY PERIPHERAL [None]
  - PANCREATITIS ACUTE [None]
  - PRESCRIBED OVERDOSE [None]
  - PRURITUS GENERALISED [None]
  - RASH GENERALISED [None]
